FAERS Safety Report 24365207 (Version 3)
Quarter: 2024Q4

REPORT INFORMATION
  Report Type: Report from Study
  Country: US (occurrence: US)
  Receive Date: 20240926
  Receipt Date: 20241107
  Transmission Date: 20250114
  Serious: Yes (Other)
  Sender: INSMED
  Company Number: US-INSMED, INC.-2024-03249-US

PATIENT
  Sex: Female

DRUGS (3)
  1. ARIKAYCE [Suspect]
     Active Substance: AMIKACIN
     Indication: Mycobacterium avium complex infection
     Dosage: 590 MILLIGRAM, QD
     Route: 055
     Dates: start: 20240802, end: 20240901
  2. ARIKAYCE [Suspect]
     Active Substance: AMIKACIN
     Dosage: 590 MILLIGRAM, QD
     Route: 055
     Dates: start: 202410
  3. VITAMINS NOS [Suspect]
     Active Substance: VITAMINS
     Indication: Product used for unknown indication
     Dosage: UNK, UNK, UNK
     Route: 065
     Dates: end: 20240901

REACTIONS (10)
  - Nervous system disorder [Unknown]
  - Yellow skin [Recovered/Resolved]
  - Hyperhidrosis [Unknown]
  - Adverse drug reaction [Not Recovered/Not Resolved]
  - Feeling abnormal [Unknown]
  - Dysphonia [Not Recovered/Not Resolved]
  - Drug hypersensitivity [Unknown]
  - Incorrect dose administered [Unknown]
  - Device physical property issue [Unknown]
  - Device leakage [Unknown]

NARRATIVE: CASE EVENT DATE: 20240101
